FAERS Safety Report 8853465 (Version 1)
Quarter: 2012Q4

REPORT INFORMATION
  Report Type: 
  Country: US (occurrence: US)
  Receive Date: 20121022
  Receipt Date: 20121022
  Transmission Date: 20130627
  Serious: Yes (Other)
  Sender: FDA-Public Use
  Company Number: US-BAYER-2012-107913

PATIENT
  Age: 58 Year
  Sex: Male
  Weight: 129.25 kg

DRUGS (5)
  1. BAYER CHEWABLE LOW DOSE BABY ASPIRIN TABLET ORANGE [Suspect]
     Indication: ISCHAEMIC HEART DISEASE PROPHYLAXIS
     Dosage: 1 TAB, QD
     Route: 048
     Dates: start: 2007
  2. DIGOXIN [Concomitant]
  3. SIMVASTATIN [Concomitant]
  4. CLARITIN D [Concomitant]
  5. LEVACET [Concomitant]

REACTIONS (1)
  - Tinnitus [Not Recovered/Not Resolved]
